FAERS Safety Report 9215651 (Version 3)
Quarter: 2013Q3

REPORT INFORMATION
  Report Type: Spontaneous
  Country: US (occurrence: US)
  Receive Date: 20130408
  Receipt Date: 20130905
  Transmission Date: 20140515
  Serious: Yes (Other)
  Sender: FDA-Public Use
  Company Number: US-AMGEN-USASP2013023295

PATIENT
  Age: 57 Year
  Sex: Male
  Weight: 89.32 kg

DRUGS (7)
  1. XGEVA [Suspect]
     Indication: PRODUCT USED FOR UNKNOWN INDICATION
     Dosage: 120 MG, QMO
     Route: 058
     Dates: start: 20121026, end: 20130123
  2. AVASTIN /00848101/ [Suspect]
     Indication: OESOPHAGEAL CARCINOMA
     Dosage: 10 MG, Q2WK
     Route: 042
     Dates: start: 20121024, end: 20130403
  3. IRINOTECAN [Concomitant]
     Indication: OESOPHAGEAL CARCINOMA
     Dosage: 180 MG, Q2WK
     Route: 042
     Dates: start: 20121026
  4. CORTICOSTEROIDS [Concomitant]
  5. 5-FU                               /00098801/ [Concomitant]
     Indication: OESOPHAGEAL CARCINOMA
     Dosage: 2400 MG, Q2WK
     Route: 042
     Dates: start: 20121026
  6. LEUCOVORIN                         /00566701/ [Concomitant]
     Indication: OESOPHAGEAL CARCINOMA
     Dosage: 400 MG, Q2WK
     Route: 042
     Dates: start: 20121026
  7. HERCEPTIN [Concomitant]
     Indication: OESOPHAGEAL CARCINOMA
     Dosage: 4 MG, Q2WK
     Route: 042
     Dates: start: 20130417

REACTIONS (2)
  - Osteonecrosis of jaw [Recovering/Resolving]
  - Oesophageal cancer metastatic [Unknown]
